FAERS Safety Report 8297945-1 (Version None)
Quarter: 2012Q2

REPORT INFORMATION
  Report Type: 
  Country: None (occurrence: None)
  Receive Date: 20120419
  Receipt Date: 20120416
  Transmission Date: 20120825
  Serious: Yes (Life-Threatening)
  Sender: FDA-Public Use
  Company Number: DK-B.I. PHARMACEUTICALS,INC./RIDGEFIELD-2012-SW-00314DB

PATIENT
  Sex: Female

DRUGS (3)
  1. ASPIRIN [Concomitant]
     Indication: THROMBOSIS PROPHYLAXIS
     Dates: start: 20070101
  2. PRADAXA [Suspect]
     Indication: ATRIAL FIBRILLATION
     Dosage: 220 MG
     Route: 048
     Dates: start: 20111104
  3. WARFARIN SODIUM [Concomitant]

REACTIONS (2)
  - EPISTAXIS [None]
  - CEREBROVASCULAR ACCIDENT [None]
